FAERS Safety Report 16008853 (Version 1)
Quarter: 2019Q1

REPORT INFORMATION
  Report Type: Spontaneous
  Country: IT (occurrence: IT)
  Receive Date: 20190225
  Receipt Date: 20190225
  Transmission Date: 20190418
  Serious: Yes (Hospitalization)
  Sender: FDA-Public Use
  Company Number: IT-TEVA-2019-IT-1014997

PATIENT
  Age: 59 Year
  Sex: Female

DRUGS (2)
  1. GEMCITABINE [Suspect]
     Active Substance: GEMCITABINE\GEMCITABINE HYDROCHLORIDE
     Indication: BLADDER NEOPLASM
     Route: 042
     Dates: start: 20181030, end: 20181030
  2. CISPLATIN. [Suspect]
     Active Substance: CISPLATIN
     Indication: BLADDER NEOPLASM
     Route: 042
     Dates: start: 20181023, end: 20181024

REACTIONS (2)
  - Anaemia [Recovered/Resolved]
  - Febrile neutropenia [Recovered/Resolved]

NARRATIVE: CASE EVENT DATE: 20181108
